FAERS Safety Report 5598186-9 (Version None)
Quarter: 2008Q1

REPORT INFORMATION
  Report Type: 
  Country: None (occurrence: None)
  Receive Date: 20080122
  Receipt Date: 20080115
  Transmission Date: 20080703
  Serious: Yes (Other)
  Sender: FDA-Public Use
  Company Number: PHHY2008JP00755

PATIENT
  Age: 39 Year
  Sex: Female

DRUGS (1)
  1. VOLTAREN [Suspect]
     Route: 054
     Dates: start: 20050301, end: 20050301

REACTIONS (1)
  - OCULOMUCOCUTANEOUS SYNDROME [None]
